FAERS Safety Report 6471836-0 (Version None)
Quarter: 2009Q4

REPORT INFORMATION
  Report Type: 
  Country: None (occurrence: None)
  Receive Date: 20091203
  Receipt Date: 20080306
  Transmission Date: 20100525
  Serious: Yes (Death, Life-Threatening, Other)
  Sender: FDA-Public Use
  Company Number: IT-ELI_LILLY_AND_COMPANY-IT200803001545

PATIENT
  Sex: Female

DRUGS (14)
  1. XIGRIS [Suspect]
     Indication: SEPTIC SHOCK
     Dosage: 50 MG, DAILY (1/D)
     Route: 042
     Dates: start: 20060630, end: 20060702
  2. MELPHALAN [Concomitant]
     Indication: MULTIPLE MYELOMA
     Dosage: UNK, UNKNOWN
     Route: 065
     Dates: start: 20060301
  3. THALIDOMIDE [Concomitant]
     Indication: MULTIPLE MYELOMA
     Dosage: UNK, UNKNOWN
     Route: 065
     Dates: start: 20060301
  4. PREDNISON [Concomitant]
     Indication: MULTIPLE MYELOMA
     Dosage: UNK, UNKNOWN
     Route: 065
     Dates: start: 20060301
  5. CORDARONE [Concomitant]
     Indication: ATRIAL FIBRILLATION
     Dosage: 1.2 ML, EVERY HOUR
     Route: 042
     Dates: start: 20060629, end: 20060701
  6. PROPOFOL [Concomitant]
     Indication: SEDATION
     Dosage: 4 MG, EVERY HOUR
     Route: 042
     Dates: start: 20060629
  7. FENTATIENIL [Concomitant]
     Indication: SEDATION
     Dosage: 2 MG, EVERY HOUR
     Route: 042
     Dates: start: 20060629, end: 20060703
  8. NORADRENALINE [Concomitant]
     Indication: CARDIAC FAILURE
     Dosage: 3 ML, EVERY HOUR
     Route: 042
     Dates: start: 20060630
  9. VANCOMYCIN HCL [Concomitant]
     Indication: PNEUMOCOCCAL SEPSIS
     Dosage: 1 ML, EVERY HOUR
     Route: 042
  10. AMPLITAL [Concomitant]
     Dosage: UNK, UNKNOWN
     Route: 065
  11. VOLUVEN [Concomitant]
     Dosage: UNK, UNKNOWN
     Route: 065
     Dates: start: 20060601
  12. ALBUMIN (HUMAN) [Concomitant]
     Dosage: UNK, UNKNOWN
     Route: 065
     Dates: start: 20060601
  13. ENOXAPARIN SODIUM [Concomitant]
     Dosage: UNK, UNKNOWN
     Route: 065
     Dates: start: 20060601
  14. LASIX [Concomitant]
     Dosage: UNK, UNKNOWN
     Route: 065
     Dates: start: 20060628

REACTIONS (5)
  - ANURIA [None]
  - COMA [None]
  - HAEMORRHAGE INTRACRANIAL [None]
  - HYPOTENSION [None]
  - SEPTIC SHOCK [None]
